FAERS Safety Report 9927452 (Version 2)
Quarter: 2014Q1

REPORT INFORMATION
  Report Type: Spontaneous
  Country: IT (occurrence: IT)
  Receive Date: 20140227
  Receipt Date: 20140319
  Transmission Date: 20141002
  Serious: Yes (Hospitalization)
  Sender: FDA-Public Use
  Company Number: IT-ROCHE-1353414

PATIENT
  Age: 59 Year
  Sex: Male
  Weight: 100 kg

DRUGS (1)
  1. ROCEFIN [Suspect]
     Indication: BRONCHITIS
     Dosage: 1 G/3,5 ML
     Route: 030
     Dates: start: 20140216, end: 20140216

REACTIONS (5)
  - Bronchostenosis [Recovering/Resolving]
  - Flushing [Recovering/Resolving]
  - Hypotension [Recovering/Resolving]
  - Pruritus [Recovering/Resolving]
  - Syncope [Recovering/Resolving]
